FAERS Safety Report 9213731 (Version 2)
Quarter: 2013Q3

REPORT INFORMATION
  Report Type: Spontaneous
  Country: RU (occurrence: RU)
  Receive Date: 20130405
  Receipt Date: 20130925
  Transmission Date: 20140515
  Serious: Yes (Hospitalization)
  Sender: FDA-Public Use
  Company Number: RU-SANOFI-AVENTIS-2012SA093069

PATIENT
  Age: 75 Year
  Sex: Male

DRUGS (6)
  1. PLAVIX [Suspect]
     Indication: THROMBOSIS PROPHYLAXIS
     Route: 048
     Dates: start: 201112, end: 201302
  2. THROMBO ASS [Concomitant]
     Route: 048
     Dates: end: 201302
  3. ATORVASTATIN [Concomitant]
     Route: 048
     Dates: end: 201302
  4. PRESTARIUM [Concomitant]
     Route: 048
  5. CORDARONE [Concomitant]
     Dosage: FORM: FILM COATED TABLET OF PROLONGED ACTION
  6. METOPROLOL [Concomitant]
     Route: 048

REACTIONS (6)
  - Demyelinating polyneuropathy [Not Recovered/Not Resolved]
  - Sciatica [Not Recovered/Not Resolved]
  - Pain [Not Recovered/Not Resolved]
  - Hypoaesthesia [Not Recovered/Not Resolved]
  - Pain in extremity [Not Recovered/Not Resolved]
  - Nerve conduction studies abnormal [Not Recovered/Not Resolved]
